FAERS Safety Report 25443149 (Version 1)
Quarter: 2025Q2

REPORT INFORMATION
  Report Type: Spontaneous
  Country: AE (occurrence: AE)
  Receive Date: 20250617
  Receipt Date: 20250617
  Transmission Date: 20250717
  Serious: Yes (Other)
  Sender: UCB
  Company Number: AE-UCBSA-2025034698

PATIENT
  Age: 66 Year
  Sex: Female

DRUGS (2)
  1. BRIVARACETAM [Suspect]
     Active Substance: BRIVARACETAM
     Indication: Epilepsy
  2. LAMOTRIGINE [Suspect]
     Active Substance: LAMOTRIGINE
     Indication: Epilepsy

REACTIONS (4)
  - Simple partial seizures [Unknown]
  - Seizure [Unknown]
  - Tonic convulsion [Unknown]
  - Pharyngeal hypoaesthesia [Unknown]
